FAERS Safety Report 4415602-6 (Version None)
Quarter: 2004Q2

REPORT INFORMATION
  Report Type: 
  Country: None (occurrence: None)
  Receive Date: 20040630
  Receipt Date: 20040106
  Transmission Date: 20050107
  Serious: Yes (Other)
  Sender: FDA-Public Use
  Company Number: 2004000770

PATIENT
  Age: 85 Year
  Sex: Female

DRUGS (3)
  1. ZOLOFT [Suspect]
     Indication: ILL-DEFINED DISORDER
  2. ARICEPT [Suspect]
     Indication: ILL-DEFINED DISORDER
     Dates: start: 20030401
  3. POSSIBLE BETA BLOCKER (ALL OTHER THERAPEUTIC PRODUCTS) [Concomitant]

REACTIONS (3)
  - HEAD INJURY [None]
  - HEART RATE DECREASED [None]
  - SYNCOPE [None]
